FAERS Safety Report 8937048 (Version 3)
Quarter: 2013Q1

REPORT INFORMATION
  Report Type: Spontaneous
  Country: AU (occurrence: AU)
  Receive Date: 20121130
  Receipt Date: 20130221
  Transmission Date: 20140127
  Serious: Yes (Disabling, Other)
  Sender: FDA-Public Use
  Company Number: AU-009507513-1211AUS006503

PATIENT
  Age: 43 Year
  Sex: Male

DRUGS (2)
  1. ELOCON [Suspect]
     Indication: DERMATITIS
     Dosage: 50 MG, QD
     Route: 061
     Dates: start: 20121110, end: 20121114
  2. ELOCON [Suspect]
     Indication: ECZEMA

REACTIONS (5)
  - Cellulitis [Not Recovered/Not Resolved]
  - Dermatitis [Not Recovered/Not Resolved]
  - Bacterial infection [Not Recovered/Not Resolved]
  - Product quality issue [Unknown]
  - Condition aggravated [Not Recovered/Not Resolved]
